FAERS Safety Report 12463192 (Version 1)
Quarter: 2016Q2

REPORT INFORMATION
  Report Type: Spontaneous
  Country: US (occurrence: US)
  Receive Date: 20160614
  Receipt Date: 20160614
  Transmission Date: 20160815
  Serious: Yes (Hospitalization)
  Sender: FDA-Public Use
  Company Number: US-HORIZON-PRE-0186-2016

PATIENT
  Age: 69 Year
  Sex: Female

DRUGS (1)
  1. PREDNISONE. [Suspect]
     Active Substance: PREDNISONE
     Indication: ASTHMA
     Dosage: RECENT TAPER TO 5 MG DAILY

REACTIONS (2)
  - Secondary adrenocortical insufficiency [Unknown]
  - Pneumonitis [Unknown]
